FAERS Safety Report 12054172 (Version 5)
Quarter: 2018Q2

REPORT INFORMATION
  Report Type: Spontaneous
  Country: US (occurrence: US)
  Receive Date: 20160209
  Receipt Date: 20180525
  Transmission Date: 20180711
  Serious: Yes (Death, Hospitalization, Other)
  Sender: FDA-Public Use
  Company Number: US-TEVA-631807USA

PATIENT
  Age: 75 Year
  Sex: Female

DRUGS (21)
  1. LIPITOR [Concomitant]
     Active Substance: ATORVASTATIN CALCIUM
     Route: 065
  2. LASIX [Concomitant]
     Active Substance: FUROSEMIDE
  3. EXFORGE [Concomitant]
     Active Substance: AMLODIPINE BESYLATE\VALSARTAN
  4. COPAXONE [Suspect]
     Active Substance: GLATIRAMER ACETATE
     Route: 058
     Dates: start: 20140911
  5. OMEPRAZOLE. [Concomitant]
     Active Substance: OMEPRAZOLE
     Route: 065
  6. TRADJENTA [Concomitant]
     Active Substance: LINAGLIPTIN
  7. FOLBIC [Concomitant]
     Active Substance: CYANOCOBALAMIN\FOLIC ACID\PYRIDOXINE
     Route: 065
  8. MAGNESIUM [Concomitant]
     Active Substance: MAGNESIUM
  9. VITAMIN D [Concomitant]
     Active Substance: CHOLECALCIFEROL
  10. PANTOPRAZOLE [Concomitant]
     Active Substance: PANTOPRAZOLE
     Route: 065
  11. METOCLOPRAMIDE. [Concomitant]
     Active Substance: METOCLOPRAMIDE
     Route: 065
  12. CALCIUM + D [Concomitant]
     Active Substance: CALCIUM\VITAMIN D
  13. VITAMIN C [Concomitant]
     Active Substance: ASCORBIC ACID
  14. PROVIGIL [Concomitant]
     Active Substance: MODAFINIL
  15. ACETYLSALICYLIC ACID [Concomitant]
     Active Substance: ASPIRIN
  16. COPAXONE [Suspect]
     Active Substance: GLATIRAMER ACETATE
     Indication: MULTIPLE SCLEROSIS
     Route: 058
     Dates: start: 20140519
  17. MODAFINIL. [Concomitant]
     Active Substance: MODAFINIL
     Route: 065
  18. LEXAPRO [Concomitant]
     Active Substance: ESCITALOPRAM OXALATE
     Route: 065
  19. FISH OIL [Concomitant]
     Active Substance: FISH OIL
  20. HYDROCODONE BITARTRATE AND ACETAMINOPHEN [Concomitant]
     Active Substance: ACETAMINOPHEN\HYDROCODONE BITARTRATE
  21. TYLENOL [Concomitant]
     Active Substance: ACETAMINOPHEN

REACTIONS (2)
  - Death [Fatal]
  - Vulval cancer [Unknown]

NARRATIVE: CASE EVENT DATE: 2015
